FAERS Safety Report 4280330-7 (Version None)
Quarter: 2004Q1

REPORT INFORMATION
  Report Type: 
  Country: None (occurrence: None)
  Receive Date: 20040126
  Receipt Date: 20040114
  Transmission Date: 20041129
  Serious: Yes (Hospitalization, Disabling)
  Sender: FDA-Public Use
  Company Number: 2003-110621-NL

PATIENT
  Age: 39 Year
  Sex: Female

DRUGS (2)
  1. MIRTAZAPINE [Suspect]
     Dosage: 30 MG, ORAL
     Route: 048
     Dates: start: 20031117, end: 20031118
  2. BROMAZEPAM [Suspect]
     Dosage: DF

REACTIONS (6)
  - BLOOD PRESSURE SYSTOLIC DECREASED [None]
  - FALL [None]
  - LOSS OF CONSCIOUSNESS [None]
  - SOMNOLENCE [None]
  - TOOTH FRACTURE [None]
  - TOOTH LOSS [None]
